FAERS Safety Report 4384096-1 (Version None)
Quarter: 2004Q2

REPORT INFORMATION
  Report Type: 
  Country: None (occurrence: None)
  Receive Date: 20040623
  Receipt Date: 20040623
  Transmission Date: 20050107
  Serious: Yes (Other)
  Sender: FDA-Public Use
  Company Number: None

PATIENT

DRUGS (2)
  1. PPD SOLUTION PARKENDALE [Suspect]
     Dates: start: 20040418
  2. PPD SOLUTION PARKENDALE [Suspect]
     Dates: start: 20040419

REACTIONS (1)
  - FALSE POSITIVE TUBERCULOSIS TEST [None]
